FAERS Safety Report 21135201 (Version 1)
Quarter: 2022Q3

REPORT INFORMATION
  Report Type: Spontaneous
  Country: FR (occurrence: FR)
  Receive Date: 20220727
  Receipt Date: 20220727
  Transmission Date: 20221027
  Serious: Yes (Hospitalization, Other)
  Sender: FDA-Public Use
  Company Number: FR-ROCHE-2891433

PATIENT
  Age: 77 Year
  Sex: Male
  Weight: 77 kg

DRUGS (12)
  1. BEVACIZUMAB [Suspect]
     Active Substance: BEVACIZUMAB
     Indication: Hepatocellular carcinoma
     Dosage: UNK
     Route: 065
  2. BEVACIZUMAB [Suspect]
     Active Substance: BEVACIZUMAB
     Dosage: UNK
     Route: 065
  3. BEVACIZUMAB [Suspect]
     Active Substance: BEVACIZUMAB
     Dosage: 1160 MILLIGRAM, Q3WK
     Route: 040
     Dates: start: 20210701
  4. DOLIPRANE [Concomitant]
     Active Substance: ACETAMINOPHEN
     Indication: Headache
     Dosage: UNK
     Dates: start: 20210705, end: 20210722
  5. AMOXICILLIN [Concomitant]
     Active Substance: AMOXICILLIN
     Indication: Chronic sinusitis
     Dosage: UNK
     Dates: start: 20220303, end: 20220310
  6. Loxen [Concomitant]
     Indication: Hypertension
     Dosage: UNK
     Dates: start: 20210721, end: 20210810
  7. Loxen [Concomitant]
     Dosage: UNK
     Dates: start: 20220217, end: 20220217
  8. ATEZOLIZUMAB [Concomitant]
     Active Substance: ATEZOLIZUMAB
     Indication: Hepatocellular carcinoma
     Dosage: ON 22/JUL/2021, HE RECEIVED MOST RECENT DOSE OF ATEZOLIZUMAB (1200 MG) PRIOR TO WORSENING OF HYPERTE
     Route: 040
     Dates: start: 20210701
  9. ATEZOLIZUMAB [Concomitant]
     Active Substance: ATEZOLIZUMAB
     Dosage: UNK
  10. ATEZOLIZUMAB [Concomitant]
     Active Substance: ATEZOLIZUMAB
     Dosage: UNK
  11. Fludex [Concomitant]
     Indication: Hypertension
     Dosage: UNK
     Dates: start: 20210917
  12. MANIDIPINE [Concomitant]
     Active Substance: MANIDIPINE
     Indication: Hypertension
     Dosage: UNK
     Dates: start: 20210814

REACTIONS (3)
  - Loss of consciousness [Recovered/Resolved]
  - Hypertension [Recovered/Resolved]
  - Off label use [Unknown]

NARRATIVE: CASE EVENT DATE: 20210810
